FAERS Safety Report 7237201-3 (Version None)
Quarter: 2011Q1

REPORT INFORMATION
  Report Type: 
  Country: None (occurrence: None)
  Receive Date: 20110121
  Receipt Date: 20110118
  Transmission Date: 20110831
  Serious: Yes (Hospitalization, Other)
  Sender: FDA-Public Use
  Company Number: US-BAYER-201040212NA

PATIENT
  Sex: Female
  Weight: 72.109 kg

DRUGS (1)
  1. MIRENA [Suspect]
     Indication: CONTRACEPTION
     Dosage: 20 A?G, CONT
     Route: 015
     Dates: start: 20061113, end: 20101020

REACTIONS (1)
  - ECTOPIC PREGNANCY [None]
